FAERS Safety Report 6085912-8 (Version None)
Quarter: 2009Q1

REPORT INFORMATION
  Report Type: 
  Country: None (occurrence: None)
  Receive Date: 20090217
  Receipt Date: 20090217
  Transmission Date: 20090719
  Serious: Yes (Death)
  Sender: FDA-Public Use
  Company Number: None

PATIENT
  Sex: Female
  Weight: 72.5755 kg

DRUGS (2)
  1. FOSAMAX [Suspect]
     Indication: OSTEOPOROSIS
     Dosage: 10MG DAILY PO
     Route: 048
     Dates: start: 19960101, end: 20010101
  2. FOSAMAX [Suspect]
     Indication: OSTEOPOROSIS
     Dosage: 70MG  WEEKLY PO
     Route: 048
     Dates: start: 20010101, end: 20060101

REACTIONS (2)
  - ANOREXIA [None]
  - OESOPHAGEAL CARCINOMA [None]
